FAERS Safety Report 18246637 (Version 1)
Quarter: 2020Q3

REPORT INFORMATION
  Report Type: Spontaneous
  Country: FR (occurrence: FR)
  Receive Date: 20200909
  Receipt Date: 20200909
  Transmission Date: 20201103
  Serious: Yes (Other)
  Sender: FDA-Public Use
  Company Number: FR-PFIZER INC-2015284277

PATIENT
  Age: 12 Year
  Sex: Male

DRUGS (6)
  1. EUPANTOL [Concomitant]
     Active Substance: PANTOPRAZOLE SODIUM
     Indication: BRONCHOSPASM
     Dosage: UNK
     Dates: start: 200205
  2. MOPRAL /00661201/ [Interacting]
     Active Substance: OMEPRAZOLE SODIUM
     Indication: MUSCULOSKELETAL PAIN
     Dosage: 20 MG, EVERY NIGHT
     Route: 048
     Dates: start: 200212, end: 20030529
  3. PURINETHOL [Concomitant]
     Active Substance: MERCAPTOPURINE
     Indication: ACUTE LYMPHOCYTIC LEUKAEMIA
     Dosage: 50 MG, 2X/WEEK
     Route: 048
     Dates: start: 200308
  4. BACTRIM [Concomitant]
     Active Substance: SULFAMETHOXAZOLE\TRIMETHOPRIM
     Indication: ACUTE LYMPHOCYTIC LEUKAEMIA
     Dosage: 800 MG/160 MG, 3 TIMES/WEEK
     Route: 048
     Dates: start: 200308, end: 20030818
  5. METHOTREXATE SODIUM. [Suspect]
     Active Substance: METHOTREXATE SODIUM
     Indication: ACUTE LYMPHOCYTIC LEUKAEMIA
     Dosage: 20 MG, WEEKLY
     Route: 048
     Dates: start: 200308
  6. BACTRIM [Concomitant]
     Active Substance: SULFAMETHOXAZOLE\TRIMETHOPRIM
     Indication: PNEUMOCYSTIS JIROVECII PNEUMONIA

REACTIONS (6)
  - Myalgia [Recovered/Resolved]
  - Product use issue [Recovered/Resolved]
  - Myopathy [Recovered/Resolved]
  - Product use in unapproved indication [Recovered/Resolved]
  - Drug interaction [Recovered/Resolved]
  - Off label use [Recovered/Resolved]

NARRATIVE: CASE EVENT DATE: 2003
